FAERS Safety Report 15868223 (Version 3)
Quarter: 2019Q1

REPORT INFORMATION
  Report Type: Spontaneous
  Country: JP (occurrence: JP)
  Receive Date: 20190125
  Receipt Date: 20190329
  Transmission Date: 20190417
  Serious: Yes (Hospitalization, Other)
  Sender: FDA-Public Use
  Company Number: JP-BRISTOL-MYERS SQUIBB COMPANY-BMS-2018-096920

PATIENT
  Age: 79 Year
  Sex: Male
  Weight: 53 kg

DRUGS (3)
  1. OPDIVO [Suspect]
     Active Substance: NIVOLUMAB
     Indication: GASTRIC CANCER
     Dosage: 140 MG, UNK
     Route: 041
     Dates: start: 20180208, end: 20180816
  2. CALONAL [Concomitant]
     Active Substance: ACETAMINOPHEN
     Indication: PRODUCT USED FOR UNKNOWN INDICATION
     Dosage: 300 MG, Q8H
     Route: 048
     Dates: start: 20180208, end: 20180816
  3. METOCLOPRAMIDE. [Concomitant]
     Active Substance: METOCLOPRAMIDE
     Indication: PRODUCT USED FOR UNKNOWN INDICATION
     Dosage: 5 MG, Q8H
     Route: 048
     Dates: start: 20180208, end: 20180816

REACTIONS (7)
  - Secondary adrenocortical insufficiency [Recovered/Resolved with Sequelae]
  - Fulminant type 1 diabetes mellitus [Recovered/Resolved with Sequelae]
  - Adrenal disorder [Unknown]
  - Fall [Unknown]
  - Type 1 diabetes mellitus [Unknown]
  - Delirium [Unknown]
  - Spinal compression fracture [Unknown]

NARRATIVE: CASE EVENT DATE: 20180813
